FAERS Safety Report 18172973 (Version 2)
Quarter: 2020Q3

REPORT INFORMATION
  Report Type: Report from Study
  Country: GB (occurrence: GB)
  Receive Date: 20200819
  Receipt Date: 20200909
  Transmission Date: 20201103
  Serious: Yes (Other)
  Sender: FDA-Public Use
  Company Number: GB-SAMSUNG BIOEPIS-SB-2020-26026

PATIENT
  Age: 50 Year
  Sex: Female

DRUGS (7)
  1. COLESEVELAM [Concomitant]
     Active Substance: COLESEVELAM
     Indication: PRODUCT USED FOR UNKNOWN INDICATION
     Dosage: 625 MGS X 2/3, AM AND PM
     Route: 065
  2. LANSOPRAZOLE. [Concomitant]
     Active Substance: LANSOPRAZOLE
     Indication: PRODUCT USED FOR UNKNOWN INDICATION
     Route: 065
  3. IMRALDI [Suspect]
     Active Substance: ADALIMUMAB
     Indication: CROHN^S DISEASE
     Route: 058
     Dates: start: 20190117, end: 20200617
  4. IMRALDI [Suspect]
     Active Substance: ADALIMUMAB
     Route: 058
     Dates: start: 20200624
  5. OMEPRAZOLE. [Concomitant]
     Active Substance: OMEPRAZOLE
     Indication: PRODUCT USED FOR UNKNOWN INDICATION
     Dosage: UNKNOWN
     Route: 065
  6. VITAMIN B12 [Concomitant]
     Active Substance: CYANOCOBALAMIN
     Indication: PRODUCT USED FOR UNKNOWN INDICATION
     Dosage: UNKNOWN
     Route: 065
     Dates: start: 20200505
  7. COLESEVELAM [Concomitant]
     Active Substance: COLESEVELAM
     Dosage: UNKNOWN
     Route: 065

REACTIONS (21)
  - Chest discomfort [Unknown]
  - Nasal discomfort [Unknown]
  - Suspected COVID-19 [Unknown]
  - Micturition urgency [Unknown]
  - Cough [Unknown]
  - Upper respiratory tract infection [Unknown]
  - Erythema [Unknown]
  - Skin haemorrhage [Unknown]
  - Epistaxis [Unknown]
  - Ill-defined disorder [Unknown]
  - Limb injury [Unknown]
  - Body temperature increased [Unknown]
  - Influenza like illness [Unknown]
  - Dyspnoea [Unknown]
  - Fatigue [Unknown]
  - Crohn^s disease [Unknown]
  - Infection [Unknown]
  - Flank pain [Unknown]
  - Kidney infection [Unknown]
  - Feeling abnormal [Unknown]
  - Paraesthesia [Unknown]

NARRATIVE: CASE EVENT DATE: 202003
